FAERS Safety Report 5710535-7 (Version None)
Quarter: 2008Q2

REPORT INFORMATION
  Report Type: 
  Country: None (occurrence: None)
  Receive Date: 20080415
  Receipt Date: 20080407
  Transmission Date: 20081010
  Serious: Yes (Other)
  Sender: FDA-Public Use
  Company Number: 2008AP000833

PATIENT
  Age: 71 Year
  Sex: Female

DRUGS (3)
  1. SERTRALINE HYDROCHLORIDE [Suspect]
     Indication: DEPRESSION
     Dosage: 100 MG;QD;PO
     Route: 048
     Dates: start: 20060101
  2. ALLOPURINOL [Concomitant]
  3. PINDOLOL [Concomitant]

REACTIONS (1)
  - COELIAC DISEASE [None]
